FAERS Safety Report 23607983 (Version 1)
Quarter: 2024Q1

REPORT INFORMATION
  Report Type: Spontaneous
  Country: GB (occurrence: GB)
  Receive Date: 20240307
  Receipt Date: 20240307
  Transmission Date: 20240410
  Serious: No
  Sender: FDA-Public Use
  Company Number: None

PATIENT
  Age: 69 Year
  Sex: Male
  Weight: 67 kg

DRUGS (12)
  1. RANOLAZINE [Suspect]
     Active Substance: RANOLAZINE
     Dosage: 375 MG
     Route: 065
     Dates: start: 20240115
  2. ISOSORBIDE MONONITRATE [Concomitant]
     Active Substance: ISOSORBIDE MONONITRATE
     Dosage: 1 DF, QD
     Route: 065
     Dates: start: 20230522
  3. INSULIN HUMAN [Concomitant]
     Active Substance: INSULIN HUMAN
     Route: 065
     Dates: start: 20230927
  4. METFORMIN HYDROCHLORIDE [Concomitant]
     Active Substance: METFORMIN HYDROCHLORIDE
     Route: 065
     Dates: start: 20230522
  5. ASPIRIN [Concomitant]
     Active Substance: ASPIRIN
     Route: 065
     Dates: start: 20230522
  6. ATORVASTATIN [Concomitant]
     Active Substance: ATORVASTATIN
     Dosage: TAKE ONE AT NIGHT AS DIRECTED
     Route: 065
     Dates: start: 20230522
  7. BISOPROLOL [Concomitant]
     Active Substance: BISOPROLOL\BISOPROLOL FUMARATE
     Dosage: ONE (UNKNOWN DOSE) TAKEN TWICE A DAY AS DIRECTED
     Route: 065
     Dates: start: 20230522
  8. FUROSEMIDE [Concomitant]
     Active Substance: FUROSEMIDE
     Route: 065
     Dates: start: 20230522
  9. NITROGLYCERIN [Concomitant]
     Active Substance: NITROGLYCERIN
     Route: 065
     Dates: start: 20230522
  10. LANSOPRAZOLE [Concomitant]
     Active Substance: LANSOPRAZOLE
     Dosage: ONE (UNKNOWN DOSE) TAKEN ONCE DAILY
     Route: 065
     Dates: start: 20230522
  11. LATANOPROST [Concomitant]
     Active Substance: LATANOPROST
     Dates: start: 20230522
  12. TICAGRELOR [Concomitant]
     Active Substance: TICAGRELOR
     Route: 065
     Dates: start: 20230522

REACTIONS (2)
  - Headache [Recovered/Resolved]
  - Dizziness [Recovered/Resolved]

NARRATIVE: CASE EVENT DATE: 20240115
